FAERS Safety Report 8352103-7 (Version None)
Quarter: 2012Q2

REPORT INFORMATION
  Report Type: 
  Country: None (occurrence: None)
  Receive Date: 20120511
  Receipt Date: 20120504
  Transmission Date: 20120825
  Serious: Yes (Life-Threatening, Hospitalization, Disabling, Other)
  Sender: FDA-Public Use
  Company Number: US-AMGEN-USASP2012024760

PATIENT
  Age: 64 Year
  Sex: Male
  Weight: 66 kg

DRUGS (18)
  1. TAMSULOSIN HCL [Concomitant]
     Dosage: 0.8 MG, QD
  2. RIBAVIRIN [Concomitant]
     Dosage: UNK
     Dates: start: 20110901, end: 20120101
  3. SPIRONOLACTONE [Concomitant]
     Dosage: 100 MG, QD
  4. INTERFERON [Concomitant]
     Dosage: UNK
     Dates: start: 20110901, end: 20120101
  5. FUROSEMIDE [Concomitant]
     Dosage: 40 MG, UNK
  6. ZINC SULFATE [Concomitant]
     Dosage: 220 MG, BID
  7. FLOMAX [Concomitant]
     Dosage: UNK
  8. CHOLESTYRAMINE [Concomitant]
     Dosage: UNK
  9. PULMICORT [Concomitant]
     Dosage: 180 MUG, BID
  10. LACTULOSE [Concomitant]
     Dosage: 15 ML, TID
  11. TELAPREVIR [Concomitant]
     Dosage: UNK
     Dates: start: 20110901, end: 20120101
  12. PROCRIT [Suspect]
     Indication: ANAEMIA
     Dosage: 40000 IU, QWK
     Route: 058
     Dates: start: 20111101, end: 20120322
  13. CARAFATE [Concomitant]
     Dosage: 1 G, BID
  14. INSULIN [Concomitant]
     Dosage: 24 IU, UNK
  15. TRIAMCINOLONE [Concomitant]
     Dosage: UNK UNK, QID
  16. ALBUTEROL [Concomitant]
     Dosage: UNK
  17. ACIPHEX [Concomitant]
     Dosage: 20 MG, QD
  18. AMBIEN [Concomitant]
     Dosage: 10 MG, QD

REACTIONS (12)
  - RETICULOCYTOPENIA [None]
  - THERAPEUTIC RESPONSE DECREASED [None]
  - PORTAL HYPERTENSION [None]
  - ANAEMIA [None]
  - HEPATIC ENCEPHALOPATHY [None]
  - HEPATITIS C [None]
  - STREPTOCOCCAL BACTERAEMIA [None]
  - PERITONITIS BACTERIAL [None]
  - VARICES OESOPHAGEAL [None]
  - APLASIA PURE RED CELL [None]
  - SPLENOMEGALY [None]
  - ENDOCARDITIS [None]
